FAERS Safety Report 13896398 (Version 1)
Quarter: 2017Q3

REPORT INFORMATION
  Report Type: Spontaneous
  Country: US (occurrence: None)
  Receive Date: 20170815
  Receipt Date: 20170815
  Transmission Date: 20171127
  Serious: Yes (Hospitalization)
  Sender: FDA-Public Use
  Company Number: None

PATIENT
  Age: 42 Year
  Sex: Male
  Weight: 101 kg

DRUGS (1)
  1. INDOMETHACIN. [Suspect]
     Active Substance: INDOMETHACIN
     Indication: GOUT
     Route: 048
     Dates: start: 20170420, end: 20170426

REACTIONS (8)
  - Abdominal pain [None]
  - Pyrexia [None]
  - Vomiting [None]
  - Haematemesis [None]
  - Nausea [None]
  - Chills [None]
  - Abdominal discomfort [None]
  - Gastric ulcer [None]

NARRATIVE: CASE EVENT DATE: 20170530
